FAERS Safety Report 9342510 (Version 1)
Quarter: 2013Q2

REPORT INFORMATION
  Report Type: Spontaneous
  Country: US (occurrence: None)
  Receive Date: 20130528
  Receipt Date: 20130528
  Transmission Date: 20140414
  Serious: Yes (Hospitalization)
  Sender: FDA-Public Use
  Company Number: 2012AP001379

PATIENT
  Age: 57 Year
  Sex: Male

DRUGS (8)
  1. FERRIPROX [Suspect]
     Indication: IRON OVERLOAD
     Route: 048
     Dates: start: 20120306, end: 20120427
  2. ACYCLOVIR [Concomitant]
  3. FLUCONAZOLE [Concomitant]
  4. PREDNISONE [Concomitant]
  5. BACTRIM [Concomitant]
  6. CLARITIN [Concomitant]
  7. METOPROLOL [Concomitant]
  8. DILTIAZEM [Concomitant]

REACTIONS (3)
  - Myocardial infarction [None]
  - Coronary artery occlusion [None]
  - Neutrophil count decreased [None]
